FAERS Safety Report 8438888-X (Version None)
Quarter: 2012Q2

REPORT INFORMATION
  Report Type: 
  Country: None (occurrence: None)
  Receive Date: 20120323
  Receipt Date: 20110922
  Transmission Date: 20120825
  Serious: Yes (Other)
  Sender: FDA-Public Use
  Company Number: 163-21880-11062657

PATIENT
  Age: 70 Year
  Sex: Female

DRUGS (1)
  1. REVLIMID [Suspect]
     Indication: MULTIPLE MYELOMA
     Dosage: 15 MG, DAYS 1-21 EVERY 28 DAYS, PO
     Route: 048
     Dates: start: 20110301

REACTIONS (4)
  - VOMITING [None]
  - INFECTION [None]
  - SPINAL FRACTURE [None]
  - DIARRHOEA [None]
